FAERS Safety Report 4738448-8 (Version None)
Quarter: 2005Q3

REPORT INFORMATION
  Report Type: 
  Country: None (occurrence: None)
  Receive Date: 20050728
  Receipt Date: 20050423
  Transmission Date: 20060218
  Serious: No
  Sender: FDA-Public Use
  Company Number: 200513470US

PATIENT
  Age: 65 Year
  Sex: Female

DRUGS (4)
  1. KETEK [Suspect]
     Indication: EAR INFECTION
     Dosage: 800 MG QD PO
     Route: 048
     Dates: start: 20050421, end: 20050423
  2. KETEK [Suspect]
     Indication: PHARYNGITIS
     Dosage: 800 MG QD PO
     Route: 048
     Dates: start: 20050421, end: 20050423
  3. HYDROXYZINE [Concomitant]
  4. ADVIL [Concomitant]

REACTIONS (1)
  - RASH [None]
